FAERS Safety Report 6523776-6 (Version None)
Quarter: 2009Q4

REPORT INFORMATION
  Report Type: 
  Country: None (occurrence: None)
  Receive Date: 20091231
  Receipt Date: 20091130
  Transmission Date: 20100525
  Serious: No
  Sender: FDA-Public Use
  Company Number: US-BAYER-200941443NA

PATIENT
  Age: 20 Year
  Sex: Female

DRUGS (2)
  1. MIRENA [Suspect]
     Indication: CONTRACEPTION
     Dosage: CONTINUOUS DELIVERY
     Route: 015
     Dates: start: 20071201, end: 20091127
  2. MIDOL [Concomitant]
     Indication: INSOMNIA
     Dates: start: 20091129

REACTIONS (3)
  - ABDOMINAL PAIN [None]
  - DEVICE EXPULSION [None]
  - MEDICAL DEVICE COMPLICATION [None]
